FAERS Safety Report 23098852 (Version 1)
Quarter: 2023Q4

REPORT INFORMATION
  Report Type: Report from Study
  Country: BR (occurrence: BR)
  Receive Date: 20231024
  Receipt Date: 20231024
  Transmission Date: 20240109
  Serious: Yes (Other)
  Sender: FDA-Public Use
  Company Number: BR-CELLTRION INC.-2023BR020360

PATIENT

DRUGS (4)
  1. INFLIXIMAB [Suspect]
     Active Substance: INFLIXIMAB
     Indication: Ankylosing spondylitis
     Dosage: 5 AMPOULES EVERY  2 MONTHS
     Route: 042
     Dates: start: 20221116
  2. INFLIXIMAB [Suspect]
     Active Substance: INFLIXIMAB
     Dosage: 5 AMPOULES EVERY  2 MONTHS
     Route: 042
     Dates: start: 20230716
  3. DAPAGLIFLOZIN PROPANEDIOL\METFORMIN HYDROCHLORIDE [Concomitant]
     Active Substance: DAPAGLIFLOZIN PROPANEDIOL\METFORMIN HYDROCHLORIDE
     Indication: Diabetes mellitus
     Dosage: 3 PILLS A DAY, STARTED 2 YEARS AGO
     Route: 048
  4. PREDNISOLONE [Concomitant]
     Active Substance: PREDNISOLONE
     Indication: Arthritis
     Dosage: 1 PILL A DAY, WHEN IN PAIN; STARTED 2 YEARS AGO
     Route: 048

REACTIONS (6)
  - Ankylosing spondylitis [Recovering/Resolving]
  - Mobility decreased [Recovering/Resolving]
  - Pruritus [Recovering/Resolving]
  - Vision blurred [Recovering/Resolving]
  - Product availability issue [Recovering/Resolving]
  - Therapy interrupted [Recovering/Resolving]

NARRATIVE: CASE EVENT DATE: 20231012
